FAERS Safety Report 14713814 (Version 1)
Quarter: 2018Q2

REPORT INFORMATION
  Report Type: Spontaneous
  Country: FR (occurrence: FR)
  Receive Date: 20180404
  Receipt Date: 20180404
  Transmission Date: 20180711
  Serious: Yes (Other)
  Sender: FDA-Public Use
  Company Number: FR-BAYER-2018-059905

PATIENT
  Age: 80 Year
  Sex: Female

DRUGS (3)
  1. STIVARGA [Suspect]
     Active Substance: REGORAFENIB
     Indication: ADENOCARCINOMA OF COLON
     Dosage: 80 MG, QD
  2. STIVARGA [Suspect]
     Active Substance: REGORAFENIB
     Indication: METASTASES TO LIVER
     Dosage: 80 MG, QD
  3. STIVARGA [Suspect]
     Active Substance: REGORAFENIB
     Indication: METASTASES TO PERITONEUM
     Dosage: 120 MG, QD

REACTIONS (5)
  - Metastases to liver [None]
  - Off label use [None]
  - Metastases to peritoneum [None]
  - Carcinoembryonic antigen increased [None]
  - Skin toxicity [None]
